FAERS Safety Report 6856475-1 (Version None)
Quarter: 2010Q3

REPORT INFORMATION
  Report Type: 
  Country: None (occurrence: None)
  Receive Date: 20100719
  Receipt Date: 20100709
  Transmission Date: 20110219
  Serious: Yes (Hospitalization)
  Sender: FDA-Public Use
  Company Number: DE-ROCHE-711726

PATIENT
  Sex: Female
  Weight: 66.4 kg

DRUGS (5)
  1. BEVACIZUMAB [Suspect]
     Dosage: DOSE LEVEL: 15 MG/KG. FORM: VIALS. LAST DOSE PRIOR TO SAE: 15 JUNE 2010.
     Route: 042
     Dates: start: 20100615, end: 20100708
  2. TRASTUZUMAB [Suspect]
     Dosage: FORM: VIALS. DOSE LEVEL: 8 MG/KG. LAST DOSE PRIOR TO SAE: 15 JUNE 2010. LOADING DOSE.
     Route: 042
     Dates: start: 20100615, end: 20100708
  3. CARBOPLATIN [Suspect]
     Dosage: DOSE LEVEL: 6 AUC. FORM: VIALS. LAST DOSE PRIOR TO SAE: 15 JUNE 2010
     Route: 042
     Dates: start: 20100615, end: 20100708
  4. DOCETAXEL [Suspect]
     Dosage: FORM: VIALS.DOSE LEVEL: 75MG/ME2. LAST DOSE PRIOR TO SAE: 15 JUNE 2010
     Route: 042
     Dates: start: 20100615, end: 20100707
  5. LOPERAMIDE [Concomitant]
     Dates: start: 20100121

REACTIONS (2)
  - DIARRHOEA [None]
  - NEUTROPENIA [None]
